FAERS Safety Report 5778497-4 (Version None)
Quarter: 2008Q2

REPORT INFORMATION
  Report Type: 
  Country: None (occurrence: None)
  Receive Date: 20080618
  Receipt Date: 20080618
  Transmission Date: 20081010
  Serious: Yes (Hospitalization)
  Sender: FDA-Public Use
  Company Number: None

PATIENT
  Age: 52 Year
  Sex: Female
  Weight: 71.8 kg

DRUGS (1)
  1. IBUROFEN [Suspect]
     Indication: PAIN
     Dosage: 600 MG QID PO
     Route: 048
     Dates: start: 20061122, end: 20080615

REACTIONS (2)
  - ANAEMIA [None]
  - UPPER GASTROINTESTINAL HAEMORRHAGE [None]
